FAERS Safety Report 14167694 (Version 1)
Quarter: 2017Q4

REPORT INFORMATION
  Report Type: Spontaneous
  Country: GB (occurrence: GB)
  Receive Date: 20171108
  Receipt Date: 20171108
  Transmission Date: 20180321
  Serious: Yes (Other)
  Sender: FDA-Public Use
  Company Number: GB-CONCORDIA PHARMACEUTICALS INC.-GSH201601-000045

PATIENT
  Age: 30 Year
  Sex: Male
  Weight: 70 kg

DRUGS (2)
  1. PREDNISOLONE. [Suspect]
     Active Substance: PREDNISOLONE
     Indication: LOWER RESPIRATORY TRACT INFECTION
     Dosage: FOR 7 DAYS
     Route: 048
     Dates: start: 20150610
  2. CLARITHROMYCIN. [Suspect]
     Active Substance: CLARITHROMYCIN
     Indication: LOWER RESPIRATORY TRACT INFECTION
     Dosage: 1 TABLET TWICE A DAY
     Route: 048
     Dates: start: 20150610, end: 20150620

REACTIONS (6)
  - Genital rash [Unknown]
  - Abdominal distension [Unknown]
  - Dysuria [Unknown]
  - Abdominal pain [Unknown]
  - Pearly penile papules [Not Recovered/Not Resolved]
  - Balanitis candida [Not Recovered/Not Resolved]

NARRATIVE: CASE EVENT DATE: 20150622
